FAERS Safety Report 17792058 (Version 2)
Quarter: 2020Q4

REPORT INFORMATION
  Report Type: Spontaneous
  Country: US (occurrence: US)
  Receive Date: 20200515
  Receipt Date: 20201001
  Transmission Date: 20210113
  Serious: Yes (Hospitalization, Disabling, Other)
  Sender: FDA-Public Use
  Company Number: US-ELI_LILLY_AND_COMPANY-US202005001556

PATIENT
  Sex: Female

DRUGS (10)
  1. HUMALOG [Suspect]
     Active Substance: INSULIN LISPRO
     Dosage: 8-9 U, TID PRN (SLIDING SCALE)
     Route: 058
  2. HUMALOG [Suspect]
     Active Substance: INSULIN LISPRO
     Indication: TYPE 2 DIABETES MELLITUS
     Dosage: 8-9 U, TID PRN (SLIDING SCALE)
     Route: 058
     Dates: start: 2000
  3. HUMALOG [Suspect]
     Active Substance: INSULIN LISPRO
     Indication: TYPE 2 DIABETES MELLITUS
     Dosage: 8-9 U, TID PRN (SLIDING SCALE)
     Route: 058
     Dates: start: 2000
  4. LANTUS [Concomitant]
     Active Substance: INSULIN GLARGINE
     Indication: TYPE 2 DIABETES MELLITUS
     Dosage: 12 U, BID
  5. HUMALOG [Suspect]
     Active Substance: INSULIN LISPRO
     Dosage: 8-9 U, TID PRN (SLIDING SCALE)
     Route: 058
  6. CHOLECALCIFEROL [Concomitant]
     Active Substance: CHOLECALCIFEROL
     Indication: RENAL DISORDER
     Dosage: UNK
  7. HUMALOG [Suspect]
     Active Substance: INSULIN LISPRO
     Indication: TYPE 2 DIABETES MELLITUS
     Dosage: 8-9 U, TID PRN (SLIDING SCALE)
     Route: 058
     Dates: start: 2000
  8. HUMALOG [Suspect]
     Active Substance: INSULIN LISPRO
     Dosage: 8-9 U, TID PRN (SLIDING SCALE)
     Route: 058
  9. HUMALOG [Suspect]
     Active Substance: INSULIN LISPRO
     Indication: TYPE 2 DIABETES MELLITUS
     Dosage: 8-9 U, TID PRN (SLIDING SCALE)
     Route: 058
     Dates: start: 2000
  10. HUMALOG [Suspect]
     Active Substance: INSULIN LISPRO
     Dosage: 8-9 U, TID PRN (SLIDING SCALE)
     Route: 058

REACTIONS (11)
  - Cerebrovascular accident [Recovering/Resolving]
  - Drug ineffective [Unknown]
  - Cerebral thrombosis [Unknown]
  - Fall [Not Recovered/Not Resolved]
  - Gait disturbance [Recovering/Resolving]
  - Blood glucose increased [Not Recovered/Not Resolved]
  - Product storage error [Unknown]
  - Head injury [Not Recovered/Not Resolved]
  - Chronic kidney disease [Not Recovered/Not Resolved]
  - Cataract [Not Recovered/Not Resolved]
  - Cardiac valve disease [Not Recovered/Not Resolved]

NARRATIVE: CASE EVENT DATE: 1998
